FAERS Safety Report 14270762 (Version 1)
Quarter: 2017Q4

REPORT INFORMATION
  Report Type: Spontaneous
  Country: JP (occurrence: JP)
  Receive Date: 20171211
  Receipt Date: 20171211
  Transmission Date: 20180321
  Serious: Yes (Death, Other)
  Sender: FDA-Public Use
  Company Number: JP-OTSUKA-BJ20071365

PATIENT
  Age: 60 Year
  Sex: Female
  Weight: 45 kg

DRUGS (11)
  1. LACTEC [Concomitant]
     Active Substance: CALCIUM CHLORIDE ANHYDROUS\POTASSIUM CHLORIDE\SODIUM CHLORIDE\SODIUM LACTATE
     Indication: DEHYDRATION
     Dosage: 500 ML, QD
     Route: 041
     Dates: start: 20070707, end: 20070710
  2. PLAS-AMINO [Concomitant]
     Indication: DEHYDRATION
     Dosage: 500 ML, QD
     Route: 041
     Dates: start: 20070707, end: 20070710
  3. CLONAZEPAM. [Concomitant]
     Active Substance: CLONAZEPAM
     Indication: INSOMNIA
     Dosage: 0.5 MG, UNK (DURATION: 1 YEAR 14 WEEKS)
     Route: 048
     Dates: start: 20060401, end: 20070707
  4. FUROSEMIDE. [Concomitant]
     Active Substance: FUROSEMIDE
     Indication: OEDEMA PERIPHERAL
     Dosage: 20 MG, UNK (DURATION: 1 YEAR 14 WEEKS)
     Route: 048
     Dates: start: 20070401, end: 20070707
  5. ABILIFY [Suspect]
     Active Substance: ARIPIPRAZOLE
     Indication: SCHIZOPHRENIA
     Dosage: 12 MG, BID
     Route: 048
     Dates: start: 20060703, end: 20070707
  6. LANDSEN [Concomitant]
     Active Substance: CLONAZEPAM
     Indication: INSOMNIA
     Dosage: 0.5 MG, QD
     Route: 048
     Dates: start: 20060401, end: 20070707
  7. PENCLUSIN [Concomitant]
     Indication: CONSTIPATION
     Dosage: 36 MG, QD
     Route: 048
     Dates: start: 20060401, end: 20070707
  8. MAGNESIUM OXIDE. [Concomitant]
     Active Substance: MAGNESIUM OXIDE
     Indication: CONSTIPATION
     Dosage: 1 G, BID
     Route: 048
     Dates: start: 20060401, end: 20070707
  9. SENNA [Concomitant]
     Active Substance: SENNA LEAF\SENNOSIDES\SENNOSIDES A AND B
     Indication: CONSTIPATION
     Dosage: 36 MG, UNK (DURATION: 1 YEAR 14 WEEKS)
     Route: 048
     Dates: start: 20060401, end: 20070707
  10. FLUNITRAZEPAM [Concomitant]
     Active Substance: FLUNITRAZEPAM
     Indication: INSOMNIA
     Dosage: 2 MG, QD
     Route: 048
     Dates: start: 20060401, end: 20070707
  11. FUROSEMIDE. [Concomitant]
     Active Substance: FUROSEMIDE
     Indication: OEDEMA
     Dosage: 20 MG, QD
     Route: 048
     Dates: start: 20060401, end: 20070707

REACTIONS (1)
  - Sudden death [Fatal]

NARRATIVE: CASE EVENT DATE: 20070710
